FAERS Safety Report 21133268 (Version 1)
Quarter: 2022Q3

REPORT INFORMATION
  Report Type: Spontaneous
  Country: US (occurrence: US)
  Receive Date: 20220726
  Receipt Date: 20220726
  Transmission Date: 20221026
  Serious: No
  Sender: FDA-Public Use
  Company Number: US-PFIZER INC-202201001675

PATIENT
  Age: 33 Year
  Sex: Female

DRUGS (1)
  1. PAXLOVID [Suspect]
     Active Substance: NIRMATRELVIR\RITONAVIR
     Indication: COVID-19 treatment
     Dosage: UNK
     Dates: start: 20220716, end: 20220721

REACTIONS (6)
  - Hypersensitivity [Not Recovered/Not Resolved]
  - Stomatitis [Not Recovered/Not Resolved]
  - Tongue erythema [Not Recovered/Not Resolved]
  - Swollen tongue [Not Recovered/Not Resolved]
  - Pain [Not Recovered/Not Resolved]
  - Varicella [Not Recovered/Not Resolved]

NARRATIVE: CASE EVENT DATE: 20220718
